FAERS Safety Report 20031649 (Version 1)
Quarter: 2021Q4

REPORT INFORMATION
  Report Type: Spontaneous
  Country: BR (occurrence: BR)
  Receive Date: 20211103
  Receipt Date: 20211103
  Transmission Date: 20220303
  Serious: Yes (Other)
  Sender: FDA-Public Use
  Company Number: BR-ABBVIE-21K-020-4144308-00

PATIENT
  Age: 74 Year
  Sex: Female

DRUGS (1)
  1. HUMIRA [Suspect]
     Active Substance: ADALIMUMAB
     Indication: Spondylitis
     Route: 058

REACTIONS (5)
  - Ear neoplasm [Unknown]
  - Swelling of eyelid [Unknown]
  - Blepharitis [Recovering/Resolving]
  - Ocular hyperaemia [Unknown]
  - Infection [Unknown]
